FAERS Safety Report 23370257 (Version 1)
Quarter: 2024Q1

REPORT INFORMATION
  Report Type: Spontaneous
  Country: NO (occurrence: NO)
  Receive Date: 20240105
  Receipt Date: 20240105
  Transmission Date: 20240409
  Serious: Yes (Other)
  Sender: FDA-Public Use
  Company Number: None

PATIENT
  Age: 33 Year
  Sex: Female
  Weight: 62 kg

DRUGS (3)
  1. ZOLOFT [Suspect]
     Active Substance: SERTRALINE HYDROCHLORIDE
     Indication: Post-traumatic stress disorder
     Dosage: 100 MILLIGRAM, QD
     Route: 048
     Dates: start: 20231102
  2. QUETIAPINE [Concomitant]
     Active Substance: QUETIAPINE
     Indication: Restlessness
     Dosage: QD,(UP TO THREE TIMES PER DAY)
     Route: 065
     Dates: start: 202311
  3. QUETIAPINE [Concomitant]
     Active Substance: QUETIAPINE
     Indication: Tachyphrenia

REACTIONS (2)
  - Hallucination [Recovering/Resolving]
  - Weight increased [Not Recovered/Not Resolved]

NARRATIVE: CASE EVENT DATE: 20231101
